FAERS Safety Report 7918313-5 (Version None)
Quarter: 2011Q4

REPORT INFORMATION
  Report Type: 
  Country: None (occurrence: None)
  Receive Date: 20111116
  Receipt Date: 20111111
  Transmission Date: 20120403
  Serious: Yes (Disabling, Other)
  Sender: FDA-Public Use
  Company Number: US-PFIZER INC-2011277182

PATIENT
  Sex: Female
  Weight: 104 kg

DRUGS (1)
  1. VENLAFAXINE HCL [Suspect]
     Dosage: 150 MG, DAILY
     Dates: start: 20111109, end: 20111101

REACTIONS (4)
  - SWELLING [None]
  - HEADACHE [None]
  - IMPAIRED DRIVING ABILITY [None]
  - IMPAIRED WORK ABILITY [None]
